FAERS Safety Report 9280063 (Version 2)
Quarter: 2013Q2

REPORT INFORMATION
  Report Type: Spontaneous
  Country: CH (occurrence: CH)
  Receive Date: 20130509
  Receipt Date: 20130509
  Transmission Date: 20140414
  Serious: Yes (Hospitalization, Other)
  Sender: FDA-Public Use
  Company Number: CH-JNJFOC-20130304538

PATIENT
  Age: 79 Year
  Sex: Male

DRUGS (7)
  1. XARELTO [Suspect]
     Indication: ATRIAL FIBRILLATION
     Route: 048
  2. XARELTO [Suspect]
     Indication: CEREBROVASCULAR ACCIDENT PROPHYLAXIS
     Route: 048
  3. ASPIRIN CARDIO [Interacting]
     Indication: PRODUCT USED FOR UNKNOWN INDICATION
     Route: 065
  4. BELOC ZOK [Concomitant]
     Route: 065
  5. CIPRALEX [Concomitant]
     Route: 065
  6. MEPHANOL [Concomitant]
     Route: 065
  7. SORTIS (ATORVASTATIN) [Concomitant]
     Route: 065

REACTIONS (3)
  - Haemorrhage intracranial [Unknown]
  - Pulmonary embolism [Unknown]
  - Drug interaction [Unknown]
